FAERS Safety Report 9607671 (Version 1)
Quarter: 2013Q4

REPORT INFORMATION
  Report Type: Spontaneous
  Country: US (occurrence: US)
  Receive Date: 20131009
  Receipt Date: 20131009
  Transmission Date: 20140711
  Serious: No
  Sender: FDA-Public Use
  Company Number: US-SANOFI-AVENTIS-2013SA044555

PATIENT
  Sex: Male

DRUGS (9)
  1. ARAVA [Suspect]
     Indication: RHEUMATOID ARTHRITIS
     Dates: start: 201201
  2. METHOTREXATE [Suspect]
     Indication: RHEUMATOID ARTHRITIS
     Dates: start: 2011
  3. NABUMETONE [Suspect]
     Indication: RHEUMATOID ARTHRITIS
     Dates: start: 2011
  4. PREDNISONE [Suspect]
     Indication: RHEUMATOID ARTHRITIS
     Dates: start: 201010
  5. PREDNISONE [Suspect]
     Indication: RHEUMATOID ARTHRITIS
     Dates: start: 2011
  6. PREDNISONE [Suspect]
     Indication: RHEUMATOID ARTHRITIS
     Dates: start: 2013
  7. NAPROXEN [Concomitant]
     Indication: HEADACHE
  8. TYLENOL [Suspect]
     Indication: HEADACHE
  9. ADVIL [Suspect]
     Indication: HEADACHE

REACTIONS (3)
  - Rheumatoid arthritis [Recovering/Resolving]
  - Inflammatory marker increased [Unknown]
  - Drug ineffective [Unknown]
